FAERS Safety Report 7474857-4 (Version None)
Quarter: 2011Q2

REPORT INFORMATION
  Report Type: 
  Country: None (occurrence: None)
  Receive Date: 20110512
  Receipt Date: 20110107
  Transmission Date: 20111010
  Serious: Yes (Hospitalization)
  Sender: FDA-Public Use
  Company Number: US-BAYER-201036333NA

PATIENT
  Age: 32 Year
  Sex: Female
  Weight: 99.773 kg

DRUGS (6)
  1. YAZ [Suspect]
     Dosage: UNK
     Dates: start: 20030901, end: 20100101
  2. DROSPIRENONE AND ETHINYL ESTRADIOL [Suspect]
     Dosage: UNK
     Dates: start: 20030901, end: 20100101
  3. DROSPIRENONE AND ETHINYL ESTRADIOL [Suspect]
     Dosage: UNK
     Dates: start: 20030901, end: 20100101
  4. YASMIN [Suspect]
     Dosage: UNK
     Dates: start: 20030901, end: 20100101
  5. YASMIN [Suspect]
     Dosage: UNK
     Dates: start: 20030901, end: 20100101
  6. YAZ [Suspect]
     Dosage: UNK
     Dates: start: 20030901, end: 20100101

REACTIONS (3)
  - CHOLECYSTITIS [None]
  - CHOLELITHIASIS [None]
  - GALLBLADDER DISORDER [None]
